FAERS Safety Report 8103115-X (Version None)
Quarter: 2012Q1

REPORT INFORMATION
  Report Type: 
  Country: None (occurrence: None)
  Receive Date: 20120201
  Receipt Date: 20120130
  Transmission Date: 20120608
  Serious: Yes (Hospitalization, Other)
  Sender: FDA-Public Use
  Company Number: AU-JNJFOC-20110707623

PATIENT
  Sex: Female
  Weight: 60 kg

DRUGS (19)
  1. DIAZEPAM [Concomitant]
     Indication: AGITATION
     Route: 065
     Dates: start: 20110716
  2. INVEGA SUSTENNA [Suspect]
     Route: 030
     Dates: start: 20110506
  3. LORAZEPAM [Concomitant]
     Route: 065
     Dates: start: 20110716
  4. LORAZEPAM [Concomitant]
     Route: 065
     Dates: start: 20110720
  5. HALOPERIDOL [Concomitant]
     Dosage: AT 13:50
     Route: 042
     Dates: start: 20110716
  6. INVEGA SUSTENNA [Suspect]
     Indication: SCHIZOPHRENIA
     Route: 030
     Dates: start: 20110328
  7. INVEGA SUSTENNA [Suspect]
     Route: 030
     Dates: start: 20110128
  8. MIDAZOLAM [Concomitant]
     Indication: AGITATION
     Route: 065
     Dates: start: 20110716
  9. LORAZEPAM [Concomitant]
     Dosage: AT NIGHT
     Route: 065
     Dates: start: 20110717, end: 20110717
  10. INVEGA SUSTENNA [Suspect]
     Route: 030
     Dates: start: 20110617
  11. ZUCLOPENTHIXOL [Concomitant]
     Route: 065
     Dates: start: 20110718
  12. OLANZAPINE [Concomitant]
     Dosage: TOMORROW MORNING
     Route: 065
     Dates: start: 20110717
  13. LORAZEPAM [Concomitant]
     Route: 065
     Dates: start: 20110719, end: 20110719
  14. INVEGA SUSTENNA [Suspect]
     Route: 030
     Dates: start: 20110715
  15. INVEGA SUSTENNA [Suspect]
     Route: 030
     Dates: start: 20110225
  16. QUETIAPINE [Concomitant]
     Dosage: 200
     Route: 065
     Dates: start: 20110716
  17. DIAZEPAM [Concomitant]
     Route: 065
     Dates: start: 20110716
  18. OLANZAPINE [Concomitant]
     Dosage: AT NIGHT
     Route: 065
     Dates: start: 20110718
  19. LORAZEPAM [Concomitant]
     Route: 065
     Dates: start: 20110718, end: 20110718

REACTIONS (3)
  - HOSPITALISATION [None]
  - CONDITION AGGRAVATED [None]
  - TREATMENT NONCOMPLIANCE [None]
